FAERS Safety Report 5759032-3 (Version None)
Quarter: 2008Q2

REPORT INFORMATION
  Report Type: 
  Country: None (occurrence: None)
  Receive Date: 20080604
  Receipt Date: 20080529
  Transmission Date: 20081010
  Serious: Yes (Hospitalization)
  Sender: FDA-Public Use
  Company Number: GB-BAYER-200810925BNE

PATIENT
  Age: 86 Year
  Sex: Male

DRUGS (10)
  1. ASPIRIN [Suspect]
     Indication: DRUG USE FOR UNKNOWN INDICATION
  2. AQUEOUS CREAM [Suspect]
     Indication: DRUG USE FOR UNKNOWN INDICATION
  3. ATENOLOL [Suspect]
     Indication: DRUG USE FOR UNKNOWN INDICATION
  4. BENDROFLUMETHIAZIDE [Suspect]
     Indication: DRUG USE FOR UNKNOWN INDICATION
  5. CHLORPHENIRAMINE MALEATE [Suspect]
     Indication: DRUG USE FOR UNKNOWN INDICATION
     Route: 065
  6. DIGOXIN [Suspect]
     Indication: DRUG USE FOR UNKNOWN INDICATION
     Route: 065
  7. LACTULOSE [Suspect]
     Indication: DRUG USE FOR UNKNOWN INDICATION
     Dosage: TOTAL DAILY DOSE: 20 ML
     Route: 048
  8. PREDNISOLONE [Suspect]
     Indication: DRUG USE FOR UNKNOWN INDICATION
     Route: 065
  9. URSODIOL [Suspect]
     Indication: DRUG USE FOR UNKNOWN INDICATION
     Route: 065
  10. CETOSTEARYL ALCOHOL [Suspect]
     Indication: DRUG USE FOR UNKNOWN INDICATION
     Route: 065

REACTIONS (1)
  - JAUNDICE [None]
